FAERS Safety Report 9096566 (Version 3)
Quarter: 2013Q1

REPORT INFORMATION
  Report Type: Spontaneous
  Country: DE (occurrence: DE)
  Receive Date: 20130211
  Receipt Date: 20130322
  Transmission Date: 20140127
  Serious: Yes (Hospitalization, Other)
  Sender: FDA-Public Use
  Company Number: DE-AMGEN-DEUSP2013008825

PATIENT
  Age: 71 Year
  Sex: Male
  Weight: 83 kg

DRUGS (4)
  1. ENBREL [Suspect]
     Indication: RHEUMATOID ARTHRITIS
     Dosage: 50 MG, WEEKLY
     Route: 058
     Dates: start: 20010101
  2. MTX                                /00113801/ [Concomitant]
     Dosage: 20 MG, UNK
  3. CORTISONE [Concomitant]
     Dosage: 2.5 MG, UNK
  4. MORPHINE [Concomitant]
     Dosage: 25 MG, UNK

REACTIONS (4)
  - Foot deformity [Not Recovered/Not Resolved]
  - Rheumatoid arthritis [Recovered/Resolved]
  - Joint swelling [Recovered/Resolved]
  - Fatigue [Recovered/Resolved]
